FAERS Safety Report 10017288 (Version 2)
Quarter: 2014Q2

REPORT INFORMATION
  Report Type: Spontaneous
  Country: US (occurrence: US)
  Receive Date: 20140318
  Receipt Date: 20140402
  Transmission Date: 20141212
  Serious: Yes (Other)
  Sender: FDA-Public Use
  Company Number: US-JNJFOC-20140306492

PATIENT
  Age: 83 Year
  Sex: Female
  Weight: 72.58 kg

DRUGS (13)
  1. XARELTO [Suspect]
     Indication: CARDIAC ASSISTANCE DEVICE USER
     Route: 048
  2. XARELTO [Suspect]
     Indication: CARDIAC ASSISTANCE DEVICE USER
     Dosage: WITH EVENING MEAL
     Route: 048
     Dates: start: 201211, end: 20130801
  3. XARELTO [Suspect]
     Indication: ANTICOAGULANT THERAPY
     Route: 048
  4. XARELTO [Suspect]
     Indication: ANTICOAGULANT THERAPY
     Dosage: WITH EVENING MEAL
     Route: 048
     Dates: start: 201211, end: 20130801
  5. XARELTO [Suspect]
     Indication: ATRIAL FIBRILLATION
     Dosage: WITH EVENING MEAL
     Route: 048
     Dates: start: 201211, end: 20130801
  6. XARELTO [Suspect]
     Indication: ATRIAL FIBRILLATION
     Route: 048
  7. VITAMINS NOS [Concomitant]
     Route: 065
  8. FISH OIL [Concomitant]
     Dosage: 1000 (UNSPECIFIED UNITS)
     Route: 065
  9. CALCIUM AND VIT D [Concomitant]
     Dosage: 600 (UNITS UNSPECIFIED)
     Route: 065
  10. PROTONEX [Concomitant]
     Indication: GASTROOESOPHAGEAL REFLUX DISEASE
     Route: 065
  11. TYLENOL [Concomitant]
     Indication: PAIN
     Route: 065
  12. BABY ASPIRIN [Concomitant]
     Route: 065
  13. VITAMIN - CENTRUM SILVER [Concomitant]
     Route: 065

REACTIONS (7)
  - Blood potassium increased [Recovered/Resolved]
  - Urticaria [Recovered/Resolved]
  - Myalgia [Recovering/Resolving]
  - Anaemia [Recovering/Resolving]
  - Feeling abnormal [Recovering/Resolving]
  - Insomnia [Recovering/Resolving]
  - Fatigue [Unknown]
